FAERS Safety Report 8121265-9 (Version None)
Quarter: 2012Q1

REPORT INFORMATION
  Report Type: 
  Country: None (occurrence: None)
  Receive Date: 20120208
  Receipt Date: 20120130
  Transmission Date: 20120608
  Serious: Yes (Other)
  Sender: FDA-Public Use
  Company Number: US-BAYER-2011-032308

PATIENT
  Age: 28 Year
  Sex: Female
  Weight: 104.31 kg

DRUGS (10)
  1. IBUPROFEN (ADVIL) [Concomitant]
     Dosage: UNK UNK, PRN
     Dates: start: 20010101
  2. COMPAZINE [Concomitant]
  3. ONDANSETRON HCL [Concomitant]
     Dosage: 4 MG, UNK
     Route: 030
  4. YAZ [Suspect]
     Indication: CONTRACEPTION
     Dosage: UNK, QD
     Route: 048
     Dates: start: 20060801, end: 20070202
  5. HYDROCODONE BITARTRATE AND ACETAMINOPHEN [Concomitant]
     Dosage: UNK
     Dates: start: 20070123
  6. LOESTRIN 1.5/30 [Concomitant]
     Dosage: UNK
  7. ORTHO TRI-CYCLEN LO [Concomitant]
  8. YAZ [Suspect]
     Indication: ACNE
  9. SIMVASTATIN [Concomitant]
     Indication: BLOOD CHOLESTEROL INCREASED
     Dosage: UNK
     Dates: start: 20070101
  10. PHENERGAN [Concomitant]
     Dosage: 25 MG, UNK
     Route: 030

REACTIONS (6)
  - HEADACHE [None]
  - AMNESIA [None]
  - INTRACRANIAL VENOUS SINUS THROMBOSIS [None]
  - APHASIA [None]
  - TRANSVERSE SINUS THROMBOSIS [None]
  - EMOTIONAL DISTRESS [None]
